FAERS Safety Report 5203593-X (Version None)
Quarter: 2007Q1

REPORT INFORMATION
  Report Type: 
  Country: None (occurrence: None)
  Receive Date: 20070105
  Receipt Date: 20061222
  Transmission Date: 20070707
  Serious: Yes (Hospitalization)
  Sender: FDA-Public Use
  Company Number: 234490

PATIENT
  Age: 65 Year
  Sex: Male

DRUGS (2)
  1. AVASTIN [Suspect]
     Indication: COLON CANCER
     Dosage: 350 MG, QD, INTRAVENOUS
     Route: 042
     Dates: start: 20060801, end: 20060925
  2. ERYTHROPOIETIN (EPOETIN NOS) [Concomitant]

REACTIONS (2)
  - OEDEMA PERIPHERAL [None]
  - PLATELET COUNT DECREASED [None]
